FAERS Safety Report 22180341 (Version 2)
Quarter: 2023Q2

REPORT INFORMATION
  Report Type: Report from Study
  Country: CA (occurrence: CA)
  Receive Date: 20230406
  Receipt Date: 20230628
  Transmission Date: 20230721
  Serious: Yes (Other)
  Sender: FDA-Public Use
  Company Number: CA-JNJFOC-20220865261

PATIENT
  Age: 38 Year
  Sex: Female
  Weight: 60 kg

DRUGS (1)
  1. REMICADE [Suspect]
     Active Substance: INFLIXIMAB
     Indication: Colitis ulcerative
     Dosage: THERAPY START DATE PROVIDED AS 29-JUL-2011. EXPIRY DATE: 30-JUL-2025, 31-JUL-2025
     Route: 041
     Dates: start: 20110715

REACTIONS (3)
  - Systemic lupus erythematosus [Unknown]
  - Bacterial infection [Recovered/Resolved]
  - Neutrophilic dermatosis [Not Recovered/Not Resolved]

NARRATIVE: CASE EVENT DATE: 20220811
